FAERS Safety Report 17888209 (Version 1)
Quarter: 2020Q2

REPORT INFORMATION
  Report Type: Spontaneous
  Country: US (occurrence: US)
  Receive Date: 20200612
  Receipt Date: 20200612
  Transmission Date: 20200714
  Serious: Yes (Other)
  Sender: FDA-Public Use
  Company Number: US-ALVOGEN-2020-ALVOGEN-108200

PATIENT
  Age: 59 Year
  Sex: Female

DRUGS (3)
  1. CISPLATIN. [Suspect]
     Active Substance: CISPLATIN
     Indication: ANGIOSARCOMA
     Dosage: 30 MG/M2 ON DAY 2
  2. DOXORUBICIN [Suspect]
     Active Substance: DOXORUBICIN
     Indication: ANGIOSARCOMA
     Dosage: 20 MG/M2 GIVEN AS A CONTINUOUS INFUSION FOR 18 H ON DAY 1
  3. PACLITAXEL. [Suspect]
     Active Substance: PACLITAXEL
     Indication: ANGIOSARCOMA
     Dosage: OVER 3 HOURS ON DAY 2
     Route: 041

REACTIONS (3)
  - Fatigue [Unknown]
  - Nausea [Unknown]
  - Acute kidney injury [Unknown]
